FAERS Safety Report 21861884 (Version 2)
Quarter: 2023Q1

REPORT INFORMATION
  Report Type: Spontaneous
  Country: US (occurrence: US)
  Receive Date: 20230113
  Receipt Date: 20230228
  Transmission Date: 20230418
  Serious: No
  Sender: FDA-Public Use
  Company Number: US-BAUSCHBL-2023BNL000275

PATIENT
  Age: 67 Year
  Sex: Female

DRUGS (3)
  1. LUMIFY [Suspect]
     Active Substance: BRIMONIDINE TARTRATE
     Indication: Ocular hyperaemia
     Dosage: 1 DROP IN BOTH EYES
     Route: 047
     Dates: start: 20230110, end: 20230111
  2. LUMIFY [Suspect]
     Active Substance: BRIMONIDINE TARTRATE
  3. LEVOTHYROXINE [Concomitant]
     Active Substance: LEVOTHYROXINE
     Indication: Product used for unknown indication

REACTIONS (1)
  - Drug ineffective [Unknown]
